FAERS Safety Report 6530757-5 (Version None)
Quarter: 2010Q1

REPORT INFORMATION
  Report Type: 
  Country: None (occurrence: None)
  Receive Date: 20100108
  Receipt Date: 20090313
  Transmission Date: 20100710
  Serious: No
  Sender: FDA-Public Use
  Company Number: A0765101A

PATIENT
  Sex: Female

DRUGS (1)
  1. LOVAZA [Suspect]
     Dosage: 4G PER DAY
     Route: 048

REACTIONS (4)
  - ADVERSE EVENT [None]
  - ERUCTATION [None]
  - MEDICATION ERROR [None]
  - PRODUCT QUALITY ISSUE [None]
